FAERS Safety Report 17506331 (Version 2)
Quarter: 2020Q1

REPORT INFORMATION
  Report Type: Spontaneous
  Country: US (occurrence: US)
  Receive Date: 20200306
  Receipt Date: 20200326
  Transmission Date: 20200409
  Serious: No
  Sender: FDA-Public Use
  Company Number: US-LUPIN PHARMACEUTICALS INC.-2020-00939

PATIENT
  Age: 45 Year
  Sex: Male
  Weight: 83.9 kg

DRUGS (1)
  1. OXYCODONE HYDROCHLORIDE TABLETS USP, 5 MG [Suspect]
     Active Substance: OXYCODONE HYDROCHLORIDE
     Indication: PAIN
     Dosage: 5 MILLIGRAM, (EVERY FOUR HOURLY)
     Route: 048
     Dates: start: 20200210

REACTIONS (2)
  - Drug ineffective [Unknown]
  - Product substitution issue [Unknown]

NARRATIVE: CASE EVENT DATE: 20200210
